FAERS Safety Report 23496072 (Version 1)
Quarter: 2024Q1

REPORT INFORMATION
  Report Type: Spontaneous
  Country: US (occurrence: None)
  Receive Date: 20240207
  Receipt Date: 20240207
  Transmission Date: 20240409
  Serious: No
  Sender: FDA-Public Use
  Company Number: US-ROCHE-3263098

PATIENT
  Sex: Male

DRUGS (21)
  1. XOLAIR [Suspect]
     Active Substance: OMALIZUMAB
     Indication: Asthma
     Dosage: INJECT 375MG SUBCUTANEOUSLY EVERY 4 WEEKS, 150MG ML
     Route: 058
  2. XOLAIR [Suspect]
     Active Substance: OMALIZUMAB
  3. XOLAIR [Suspect]
     Active Substance: OMALIZUMAB
  4. ALIGN [Concomitant]
     Active Substance: BIFIDOBACTERIUM LONGUM SUBSP. INFANTIS
  5. ALLEGRA ALLERGY [Concomitant]
     Active Substance: FEXOFENADINE HYDROCHLORIDE
  6. ATORVASTATIN [Concomitant]
     Active Substance: ATORVASTATIN
  7. CLOBETASOL [Concomitant]
     Active Substance: CLOBETASOL
  8. DOXEPIN HCL [Concomitant]
     Active Substance: DOXEPIN HYDROCHLORIDE
  9. EPIPEN [Concomitant]
     Active Substance: EPINEPHRINE
  10. FAMOTIDINE [Concomitant]
     Active Substance: FAMOTIDINE
  11. HYDROCORTISONE [Concomitant]
     Active Substance: HYDROCORTISONE
  12. HYDROXYZINE [Concomitant]
     Active Substance: HYDROXYZINE HYDROCHLORIDE
  13. KETOCONAZOLE [Concomitant]
     Active Substance: KETOCONAZOLE
  14. LOSARTAN POTASSIUM [Concomitant]
     Active Substance: LOSARTAN POTASSIUM
  15. MONTELUKAST [Concomitant]
     Active Substance: MONTELUKAST SODIUM
  16. OMEPRAZOLE [Concomitant]
     Active Substance: OMEPRAZOLE
  17. PREDNISONE [Concomitant]
     Active Substance: PREDNISONE
  18. SARNA LOTION [Concomitant]
  19. SULFASALAZINE [Concomitant]
     Active Substance: SULFASALAZINE
  20. SYNTHROID [Concomitant]
     Active Substance: LEVOTHYROXINE SODIUM
     Dosage: 25 MCG
  21. VITAMIN D3 [Concomitant]
     Active Substance: CHOLECALCIFEROL
     Dosage: 5000 UNIT

REACTIONS (1)
  - Influenza [Unknown]
